FAERS Safety Report 6727025-5 (Version None)
Quarter: 2010Q2

REPORT INFORMATION
  Report Type: 
  Country: None (occurrence: None)
  Receive Date: 20100517
  Receipt Date: 20100506
  Transmission Date: 20101027
  Serious: Yes (Hospitalization)
  Sender: FDA-Public Use
  Company Number: DE-BAYER-201021520GPV

PATIENT
  Age: 29 Year
  Sex: Female

DRUGS (1)
  1. MIRENA [Suspect]
     Indication: DRUG USE FOR UNKNOWN INDICATION
     Route: 015
     Dates: start: 20080910, end: 20100301

REACTIONS (8)
  - ABDOMINAL PAIN LOWER [None]
  - CIRCULATORY COLLAPSE [None]
  - ENDOMETRIOSIS [None]
  - ENDOMETRITIS [None]
  - HAEMATOSALPINX [None]
  - INTRA-ABDOMINAL HAEMORRHAGE [None]
  - METRORRHAGIA [None]
  - VAGINAL HAEMORRHAGE [None]
